FAERS Safety Report 20782170 (Version 2)
Quarter: 2022Q2

REPORT INFORMATION
  Report Type: Report from Study
  Country: BE (occurrence: None)
  Receive Date: 20220504
  Receipt Date: 20220512
  Transmission Date: 20220721
  Serious: Yes (Hospitalization)
  Sender: FDA-Public Use
  Company Number: BE-ROCHE-3049803

PATIENT
  Age: 59 Year
  Sex: Female
  Weight: 63.6 kg

DRUGS (11)
  1. ATEZOLIZUMAB [Suspect]
     Active Substance: ATEZOLIZUMAB
     Indication: Breast cancer
     Dosage: LAST DOSE BEFORE SAE: 15/FEB/2022, 1200 MG,  NO OF COURSE 5?LAST DOSE BEFORE SAE: 29/MAR/2022, 1200
     Route: 042
     Dates: start: 20220104
  2. PHESGO [Suspect]
     Active Substance: HYALURONIDASE-ZZXF\PERTUZUMAB\TRASTUZUMAB
     Indication: Breast cancer
     Dosage: ON 08/MAR/2022, 1200 MG PERTUZUMAB / 600 MG TRAZTUZUMAB, NO COURSE 2?LAST DOSE BEFORE SAE :  29/MAR/
     Route: 058
     Dates: start: 20220308
  3. PACLITAXEL [Suspect]
     Active Substance: PACLITAXEL
     Indication: Breast cancer
     Dosage: LAST DOSE BEFORE SAE : 05/APR/2022, 150 MG, NO. OF COURSE 4
     Route: 042
     Dates: start: 20220308
  4. CARBOPLATIN [Suspect]
     Active Substance: CARBOPLATIN
     Indication: Breast cancer
     Dosage: LAST DOSE BEFORE SAE : 05/APR/2022, 222 MG, NO OF COURSE, 4
     Route: 042
     Dates: start: 20220308
  5. CYCLOPHOSPHAMIDE [Concomitant]
     Active Substance: CYCLOPHOSPHAMIDE
     Route: 042
     Dates: start: 20220104, end: 20220215
  6. EPIRUBICIN [Concomitant]
     Active Substance: EPIRUBICIN
     Route: 042
     Dates: start: 20220104, end: 20220215
  7. ALIZAPRIDE HYDROCHLORIDE [Concomitant]
     Active Substance: ALIZAPRIDE HYDROCHLORIDE
     Route: 042
     Dates: start: 20220410, end: 20220412
  8. ALIZAPRIDE HYDROCHLORIDE [Concomitant]
     Active Substance: ALIZAPRIDE HYDROCHLORIDE
     Route: 048
     Dates: start: 20220412, end: 20220415
  9. TRAMADOL HYDROCHLORIDE [Concomitant]
     Active Substance: TRAMADOL HYDROCHLORIDE
     Route: 042
     Dates: start: 20220410, end: 20220412
  10. BUTYLSCOPOLAMINE BROMIDE [Concomitant]
     Active Substance: BUTYLSCOPOLAMINE BROMIDE
     Route: 042
     Dates: start: 20220410, end: 20220412
  11. ONDANSETRON [Concomitant]
     Active Substance: ONDANSETRON
     Route: 048
     Dates: start: 20220412, end: 20220412

REACTIONS (4)
  - Infusion related reaction [Recovered/Resolved]
  - Abdominal pain [Recovered/Resolved]
  - Vomiting [Recovered/Resolved]
  - Diarrhoea [Recovered/Resolved]

NARRATIVE: CASE EVENT DATE: 20220308
